FAERS Safety Report 5155649-8 (Version None)
Quarter: 2006Q4

REPORT INFORMATION
  Report Type: 
  Country: None (occurrence: None)
  Receive Date: 20061114
  Receipt Date: 20061109
  Transmission Date: 20070319
  Serious: Yes (Other)
  Sender: FDA-Public Use
  Company Number: 009107

PATIENT
  Sex: Female

DRUGS (6)
  1. MEDROXYPROGESTERONE [Suspect]
     Dosage: ORAL
     Route: 048
     Dates: start: 19900101, end: 20020701
  2. ESTRATEST [Suspect]
     Dosage: ORAL
     Route: 048
     Dates: start: 19900101, end: 20020701
  3. CYCRIN [Suspect]
     Dosage: ORAL
     Route: 048
     Dates: start: 19900101, end: 20020701
  4. PREMPHASE (PREMARIN;CYCRIN 14/14) [Suspect]
     Dosage: ORAL
     Route: 048
     Dates: start: 19900101, end: 20020701
  5. PREMARIN [Suspect]
     Dosage: ORAL
     Route: 048
     Dates: start: 19000101, end: 20020701
  6. PROVERA [Suspect]
     Dosage: ORAL
     Route: 048
     Dates: start: 19900101, end: 20020701

REACTIONS (1)
  - BREAST CANCER FEMALE [None]
